FAERS Safety Report 4608194-X (Version None)
Quarter: 2005Q2

REPORT INFORMATION
  Report Type: 
  Country: None (occurrence: None)
  Receive Date: 20050303
  Receipt Date: 20041115
  Transmission Date: 20051028
  Serious: No
  Sender: FDA-Public Use
  Company Number: 702335

PATIENT
  Sex: Female
  Weight: 86.1834 kg

DRUGS (1)
  1. AMEVIVE [Suspect]
     Indication: PSORIASIS
     Dosage: 15 MG; QW; IM
     Route: 030
     Dates: start: 20040820

REACTIONS (6)
  - FATIGUE [None]
  - LETHARGY [None]
  - PAIN OF SKIN [None]
  - PRURITUS [None]
  - PSORIASIS [None]
  - SKIN INFECTION [None]
